FAERS Safety Report 5512878-9 (Version None)
Quarter: 2007Q4

REPORT INFORMATION
  Report Type: 
  Country: None (occurrence: None)
  Receive Date: 20071112
  Receipt Date: 20071102
  Transmission Date: 20080405
  Serious: Yes (Life-Threatening, Hospitalization, Other)
  Sender: FDA-Public Use
  Company Number: A0668130A

PATIENT
  Age: 69 Year
  Sex: Female
  Weight: 58.2 kg

DRUGS (5)
  1. ADVAIR DISKUS 100/50 [Suspect]
     Indication: CHRONIC OBSTRUCTIVE PULMONARY DISEASE
     Dosage: 1PUFF VARIABLE DOSE
     Route: 055
     Dates: start: 20060201
  2. OXYGEN [Concomitant]
  3. FENTANYL PATCHES [Concomitant]
  4. LIBRIUM [Concomitant]
  5. HEART MEDICATION [Concomitant]

REACTIONS (6)
  - DYSPNOEA [None]
  - FATIGUE [None]
  - LUNG INFILTRATION [None]
  - PNEUMONIA [None]
  - RESPIRATORY DEPRESSION [None]
  - TOTAL LUNG CAPACITY DECREASED [None]
